FAERS Safety Report 18345974 (Version 1)
Quarter: 2020Q4

REPORT INFORMATION
  Report Type: Spontaneous
  Country: BR (occurrence: BR)
  Receive Date: 20201005
  Receipt Date: 20201005
  Transmission Date: 20210114
  Serious: Yes (Hospitalization)
  Sender: FDA-Public Use
  Company Number: BR-NOVOPROD-757268

PATIENT
  Age: 45 Year
  Sex: Male
  Weight: 98 kg

DRUGS (2)
  1. LOSARTAN POTASSIUM. [Concomitant]
     Active Substance: LOSARTAN POTASSIUM
     Indication: HYPERTENSION
     Dosage: 50 MG
     Route: 065
  2. OZEMPIC [Suspect]
     Active Substance: SEMAGLUTIDE
     Indication: WEIGHT DECREASED
     Dosage: 1 MG
     Route: 065
     Dates: start: 20200914, end: 20200919

REACTIONS (3)
  - Product use in unapproved indication [Unknown]
  - Malaise [Not Recovered/Not Resolved]
  - Vomiting [Not Recovered/Not Resolved]

NARRATIVE: CASE EVENT DATE: 20200916
